FAERS Safety Report 5438025-X (Version None)
Quarter: 2007Q3

REPORT INFORMATION
  Report Type: 
  Country: None (occurrence: None)
  Receive Date: 20070831
  Receipt Date: 20070629
  Transmission Date: 20080115
  Serious: No
  Sender: FDA-Public Use
  Company Number: A0660690A

PATIENT
  Age: 42 Year

DRUGS (1)
  1. ALLI [Suspect]
     Dates: start: 20070620

REACTIONS (2)
  - ABDOMINAL DISTENSION [None]
  - CHANGE OF BOWEL HABIT [None]
